FAERS Safety Report 6574343-X (Version None)
Quarter: 2010Q1

REPORT INFORMATION
  Report Type: 
  Country: None (occurrence: None)
  Receive Date: 20100201
  Receipt Date: 20100125
  Transmission Date: 20100710
  Serious: Yes (Other)
  Sender: FDA-Public Use
  Company Number: 2010SP004905

PATIENT
  Sex: Female

DRUGS (1)
  1. IMPLANON [Suspect]
     Indication: DRUG USE FOR UNKNOWN INDICATION
     Dosage: 1 DF; SBDE
     Route: 059
     Dates: end: 20091228

REACTIONS (4)
  - FATIGUE [None]
  - HAEMOPTYSIS [None]
  - HAEMORRHAGE [None]
  - MENTAL DISORDER [None]
